FAERS Safety Report 9106500 (Version 1)
Quarter: 2013Q1

REPORT INFORMATION
  Report Type: Report from Study
  Country: US (occurrence: US)
  Receive Date: 20130221
  Receipt Date: 20130221
  Transmission Date: 20140127
  Serious: Yes (Hospitalization, Other)
  Sender: FDA-Public Use
  Company Number: US-ROCHE-1193312

PATIENT
  Age: 72 Year
  Sex: Female
  Weight: 77.63 kg

DRUGS (2)
  1. AVASTIN [Suspect]
     Indication: COLORECTAL CANCER METASTATIC
     Route: 042
  2. XELODA [Suspect]
     Indication: COLORECTAL CANCER METASTATIC
     Route: 048

REACTIONS (5)
  - Abdominal pain [Not Recovered/Not Resolved]
  - Intestinal obstruction [Not Recovered/Not Resolved]
  - Intestinal operation [Not Recovered/Not Resolved]
  - Recurrent cancer [Not Recovered/Not Resolved]
  - Renal failure [Not Recovered/Not Resolved]
